FAERS Safety Report 10306737 (Version 1)
Quarter: 2014Q3

REPORT INFORMATION
  Report Type: Report from Study
  Country: BE (occurrence: BE)
  Receive Date: 20140715
  Receipt Date: 20140715
  Transmission Date: 20150326
  Serious: Yes (Death, Life-Threatening, Hospitalization, Disabling)
  Sender: FDA-Public Use
  Company Number: BE-ASTRAZENECA-2014SE49965

PATIENT
  Age: 73 Year
  Sex: Male

DRUGS (6)
  1. TICAGRELOR [Suspect]
     Active Substance: TICAGRELOR
     Indication: ACUTE CORONARY SYNDROME
     Route: 048
     Dates: start: 20140402
  2. ASA (NON-AZ PRODUCT) [Suspect]
     Active Substance: ASPIRIN
     Indication: ACUTE CORONARY SYNDROME
     Route: 048
     Dates: start: 20140402
  3. ADRENALINE [Concomitant]
     Active Substance: EPINEPHRINE
  4. INOTROPIC [Concomitant]
  5. ATROPINE [Concomitant]
     Active Substance: ATROPINE
  6. AMIODARONE [Concomitant]
     Active Substance: AMIODARONE

REACTIONS (1)
  - Acute myocardial infarction [Fatal]

NARRATIVE: CASE EVENT DATE: 20140513
